FAERS Safety Report 6670889-4 (Version None)
Quarter: 2010Q2

REPORT INFORMATION
  Report Type: 
  Country: None (occurrence: None)
  Receive Date: 20100407
  Receipt Date: 20100402
  Transmission Date: 20101027
  Serious: Yes (Hospitalization)
  Sender: FDA-Public Use
  Company Number: FR-WYE-G05884510

PATIENT
  Age: 6 Year
  Sex: Male

DRUGS (5)
  1. IBUPROFEN (ADVIL) [Suspect]
     Indication: PAIN
     Dosage: UNKNOWN
     Route: 048
     Dates: start: 20090213, end: 20090214
  2. SPECIAFOLDINE [Concomitant]
     Dosage: UNKNOWN
     Dates: start: 20070101
  3. ORACILLINE [Concomitant]
     Dosage: UNKNOWN
     Dates: start: 20070101
  4. HYDREA [Suspect]
     Dosage: UNKNOWN
     Route: 048
     Dates: start: 20080701, end: 20090219
  5. EXJADE [Suspect]
     Dosage: UNKNOWN
     Route: 048
     Dates: start: 20070101, end: 20090219

REACTIONS (3)
  - FOOD INTOLERANCE [None]
  - RENAL FAILURE ACUTE [None]
  - VOMITING [None]
